FAERS Safety Report 13449102 (Version 2)
Quarter: 2017Q2

REPORT INFORMATION
  Report Type: Spontaneous
  Country: US (occurrence: US)
  Receive Date: 20170417
  Receipt Date: 20170522
  Transmission Date: 20170830
  Serious: Yes (Other)
  Sender: FDA-Public Use
  Company Number: PHEH2017US011132

PATIENT
  Sex: Female
  Weight: 97.51 kg

DRUGS (3)
  1. ZOFRAN [Suspect]
     Active Substance: ONDANSETRON HYDROCHLORIDE
     Indication: PRODUCT USED FOR UNKNOWN INDICATION
     Route: 048
  2. ZOFRAN ODT [Suspect]
     Active Substance: ONDANSETRON HYDROCHLORIDE
     Indication: VOMITING IN PREGNANCY
     Dosage: 1 DF, Q6H
     Route: 048
     Dates: start: 20131003
  3. ZOFRAN [Suspect]
     Active Substance: ONDANSETRON HYDROCHLORIDE
     Indication: VOMITING IN PREGNANCY
     Dosage: 4 MG PER 2 ML, UNK
     Route: 042
     Dates: start: 20131003

REACTIONS (22)
  - Vomiting [Unknown]
  - Injury [Unknown]
  - Premature delivery [Unknown]
  - Herpes simplex [Unknown]
  - Dehydration [Unknown]
  - Cystitis [Unknown]
  - Eczema [Unknown]
  - Anxiety [Unknown]
  - Gestational diabetes [Unknown]
  - Depression [Unknown]
  - Hidradenitis [Unknown]
  - Vaginal infection [Unknown]
  - Muscle spasms [Unknown]
  - Anaemia [Unknown]
  - Product use in unapproved indication [Unknown]
  - Gestational hypertension [Unknown]
  - Maternal exposure during pregnancy [Unknown]
  - Abdominal pain [Unknown]
  - Dermatitis atopic [Unknown]
  - Urinary tract infection [Unknown]
  - Dyspepsia [Unknown]
  - Rubella in pregnancy [Unknown]
